FAERS Safety Report 6682032-6 (Version None)
Quarter: 2010Q2

REPORT INFORMATION
  Report Type: 
  Country: None (occurrence: None)
  Receive Date: 20100414
  Receipt Date: 20100414
  Transmission Date: 20101027
  Serious: Yes (Death)
  Sender: FDA-Public Use
  Company Number: None

PATIENT
  Age: 49 Year
  Sex: Female
  Weight: 111.3 kg

DRUGS (9)
  1. METFORMIN HCL [Suspect]
     Indication: TYPE 2 DIABETES MELLITUS
     Dosage: 500 MG QID PO
     Route: 048
  2. IMURAN [Concomitant]
  3. QUINAPRIL [Concomitant]
  4. DIABETA [Concomitant]
  5. BUMEX [Concomitant]
  6. ZANTAC [Concomitant]
  7. NADOLOL [Concomitant]
  8. KDUR [Concomitant]
  9. CIPRO [Concomitant]

REACTIONS (14)
  - AGGRESSION [None]
  - BLOOD GLUCOSE DECREASED [None]
  - BLOOD GLUCOSE INCREASED [None]
  - BLOOD UREA INCREASED [None]
  - BRADYCARDIA [None]
  - CARDIO-RESPIRATORY ARREST [None]
  - COUGH [None]
  - DIALYSIS [None]
  - DIVERTICULITIS [None]
  - HEADACHE [None]
  - LACTIC ACIDOSIS [None]
  - RESPIRATORY DISORDER [None]
  - UNRESPONSIVE TO STIMULI [None]
  - VOMITING [None]
